FAERS Safety Report 12779159 (Version 1)
Quarter: 2016Q3

REPORT INFORMATION
  Report Type: Spontaneous
  Country: US (occurrence: US)
  Receive Date: 20160922
  Receipt Date: 20160922
  Transmission Date: 20161109
  Serious: Yes (Other)
  Sender: FDA-Public Use
  Company Number: None

PATIENT
  Age: 52 Year
  Sex: Female

DRUGS (2)
  1. SILDENAFILL [Concomitant]
  2. OPSUMIT [Suspect]
     Active Substance: MACITENTAN
     Indication: PULMONARY ARTERIAL HYPERTENSION
     Route: 048
     Dates: start: 20160730

REACTIONS (7)
  - Painful respiration [None]
  - Abdominal pain upper [None]
  - Nausea [None]
  - Melaena [None]
  - Pain [None]
  - Abdominal distension [None]
  - Enterocolitis viral [None]

NARRATIVE: CASE EVENT DATE: 20160807
